FAERS Safety Report 6715210-8 (Version None)
Quarter: 2010Q2

REPORT INFORMATION
  Report Type: 
  Country: None (occurrence: None)
  Receive Date: 20100507
  Receipt Date: 20100427
  Transmission Date: 20101027
  Serious: Yes (Other)
  Sender: FDA-Public Use
  Company Number: SE-JNJFOC-20090701200

PATIENT
  Age: 37 Year
  Sex: Female

DRUGS (10)
  1. REMICADE [Suspect]
     Indication: JUVENILE ARTHRITIS
     Dosage: 3 INFUSIONS ON UNREPORTED DATES
     Route: 042
  2. REMICADE [Suspect]
     Route: 042
  3. REMICADE [Suspect]
     Dosage: 5TH INFUSION
     Route: 042
  4. METHOTREXATE [Suspect]
     Indication: RHEUMATOID ARTHRITIS
     Route: 048
  5. KODEIN [Concomitant]
     Route: 065
  6. NEXIUM [Concomitant]
     Route: 065
  7. TAVEGYL [Concomitant]
  8. TOPAMAX [Concomitant]
     Indication: MIGRAINE
  9. PREDNISOLONE [Concomitant]
  10. CODEINE PHOSPHATE / PARACETAMOL [Concomitant]

REACTIONS (3)
  - DEPRESSION [None]
  - LIVER FUNCTION TEST ABNORMAL [None]
  - TRANSAMINASES INCREASED [None]
